FAERS Safety Report 7671796-0 (Version None)
Quarter: 2011Q3

REPORT INFORMATION
  Report Type: 
  Country: None (occurrence: None)
  Receive Date: 20110809
  Receipt Date: 20110725
  Transmission Date: 20111222
  Serious: Yes (Hospitalization)
  Sender: FDA-Public Use
  Company Number: JP-WATSON-2011-10120

PATIENT
  Age: 55 Year
  Sex: Male

DRUGS (4)
  1. PREDNISOLONE [Suspect]
     Indication: PNEUMONIA
     Dosage: 60 MG, DAILY
     Route: 065
  2. MYCOPHENOLATE MEFETIL [Suspect]
     Indication: PROPHYLAXIS AGAINST TRANSPLANT REJECTION
     Dosage: 250MG/DAY
  3. CYCLOSPORINE [Suspect]
     Indication: PROPHYLAXIS AGAINST TRANSPLANT REJECTION
     Dosage: 150MG/DAY TO 50 MG/DAY
  4. METHYLPREDNISOLONE [Suspect]
     Indication: PROPHYLAXIS AGAINST TRANSPLANT REJECTION

REACTIONS (3)
  - DRUG WITHDRAWAL SYNDROME [None]
  - PNEUMOCYSTIS JIROVECI PNEUMONIA [None]
  - IMMUNE RECONSTITUTION SYNDROME [None]
